FAERS Safety Report 6893032-5 (Version None)
Quarter: 2010Q3

REPORT INFORMATION
  Report Type: 
  Country: None (occurrence: None)
  Receive Date: 20100731
  Receipt Date: 20090212
  Transmission Date: 20110219
  Serious: No
  Sender: FDA-Public Use
  Company Number: US-PFIZER INC-2008151532

PATIENT
  Sex: Male
  Weight: 90.7 kg

DRUGS (1)
  1. ANTIVERT [Suspect]
     Indication: OTITIS MEDIA
     Dosage: 25 MG, UNK

REACTIONS (2)
  - DIZZINESS [None]
  - DRUG INEFFECTIVE [None]
